FAERS Safety Report 17748521 (Version 1)
Quarter: 2020Q2

REPORT INFORMATION
  Report Type: Spontaneous
  Country: ES (occurrence: ES)
  Receive Date: 20200506
  Receipt Date: 20200506
  Transmission Date: 20200714
  Serious: Yes (Hospitalization, Other)
  Sender: FDA-Public Use
  Company Number: ES-AUROBINDO-AUR-APL-2020-022017

PATIENT
  Age: 57 Year
  Sex: Female

DRUGS (7)
  1. ROACTEMRA [Suspect]
     Active Substance: TOCILIZUMAB
     Indication: CORONAVIRUS INFECTION
     Dosage: 600 MILLIGRAM
     Route: 042
     Dates: start: 20200328, end: 20200328
  2. ROACTEMRA [Suspect]
     Active Substance: TOCILIZUMAB
     Indication: SEVERE ACUTE RESPIRATORY SYNDROME
  3. HIDROXICLOROQUINA [Suspect]
     Active Substance: HYDROXYCHLOROQUINE
     Indication: PNEUMONIA
     Dosage: 400 MILLIGRAM, DIA
     Route: 048
     Dates: start: 20200327, end: 20200330
  4. HIDROXICLOROQUINA [Suspect]
     Active Substance: HYDROXYCHLOROQUINE
     Indication: CORONAVIRUS INFECTION
  5. AZITHROMYCIN ANHYDROUS. [Suspect]
     Active Substance: AZITHROMYCIN ANHYDROUS
     Indication: CORONAVIRUS INFECTION
     Dosage: 500 MILLIGRAM, DIA
     Route: 048
     Dates: start: 20200327, end: 20200330
  6. LOPINAVIR;RITONAVIR [Suspect]
     Active Substance: LOPINAVIR\RITONAVIR
     Indication: CORONAVIRUS INFECTION
  7. LOPINAVIR;RITONAVIR [Suspect]
     Active Substance: LOPINAVIR\RITONAVIR
     Indication: PNEUMONIA
     Dosage: 2 U, TWO TIMES A DAY
     Route: 048
     Dates: start: 20200327, end: 20200404

REACTIONS (2)
  - Hepatitis [Recovering/Resolving]
  - Condition aggravated [Recovering/Resolving]

NARRATIVE: CASE EVENT DATE: 20200330
